FAERS Safety Report 5457422-X (Version None)
Quarter: 2007Q3

REPORT INFORMATION
  Report Type: 
  Country: None (occurrence: None)
  Receive Date: 20070918
  Receipt Date: 20070228
  Transmission Date: 20080115
  Serious: No
  Sender: FDA-Public Use
  Company Number: US-ASTRAZENECA-2007UW04068

PATIENT
  Age: 612 Month
  Sex: Female
  Weight: 113.6 kg

DRUGS (7)
  1. SEROQUEL [Suspect]
     Indication: SCHIZOPHRENIA
     Route: 048
     Dates: start: 20020401
  2. SEROQUEL [Suspect]
     Indication: DEPRESSION
     Route: 048
     Dates: start: 20020401
  3. SEROQUEL [Suspect]
     Route: 048
     Dates: start: 20020401
  4. SEROQUEL [Suspect]
     Route: 048
     Dates: start: 20020401
  5. TRAZODONE HCL [Concomitant]
     Dates: start: 20050120, end: 20060403
  6. MIRTAZAPINE [Concomitant]
     Dates: start: 20040831
  7. BUPROPION HCL [Concomitant]
     Dates: start: 20060221, end: 20060403

REACTIONS (5)
  - ARTHRITIS [None]
  - CARDIOMEGALY [None]
  - DIABETES MELLITUS [None]
  - HYPERTENSION [None]
  - LIGAMENT RUPTURE [None]
